FAERS Safety Report 20706837 (Version 1)
Quarter: 2022Q2

REPORT INFORMATION
  Report Type: Spontaneous
  Country: ES (occurrence: ES)
  Receive Date: 20220413
  Receipt Date: 20220413
  Transmission Date: 20220720
  Serious: Yes (Hospitalization)
  Sender: FDA-Public Use
  Company Number: None

PATIENT
  Age: 60 Year
  Sex: Female

DRUGS (1)
  1. ENOXAPARIN SODIUM [Suspect]
     Active Substance: ENOXAPARIN SODIUM
     Indication: Pulmonary embolism
     Dosage: 90 MG, BID
     Route: 058
     Dates: start: 20220217, end: 20220306

REACTIONS (2)
  - Post procedural haematoma [Recovered/Resolved]
  - Abdominal wall haematoma [Recovered/Resolved]
